FAERS Safety Report 7184107-4 (Version None)
Quarter: 2010Q4

REPORT INFORMATION
  Report Type: 
  Country: None (occurrence: None)
  Receive Date: 20101222
  Receipt Date: 20101210
  Transmission Date: 20110411
  Serious: Yes (Other)
  Sender: FDA-Public Use
  Company Number: TR-CELGENEUS-161-21880-10121129

PATIENT
  Sex: Female
  Weight: 68 kg

DRUGS (5)
  1. REVLIMID [Suspect]
     Indication: MULTIPLE MYELOMA
     Route: 048
     Dates: start: 20101119, end: 20101206
  2. ASPIRIN [Suspect]
     Route: 048
     Dates: start: 20101115
  3. DEXAMETHASONE [Suspect]
     Route: 065
  4. MELPHALAN [Concomitant]
     Indication: MULTIPLE MYELOMA
     Route: 065
     Dates: start: 20101115, end: 20101118
  5. PREDNISONE [Concomitant]
     Indication: MULTIPLE MYELOMA
     Route: 065
     Dates: start: 20101115, end: 20101118

REACTIONS (6)
  - DECREASED APPETITE [None]
  - INSOMNIA [None]
  - OEDEMA PERIPHERAL [None]
  - PAIN [None]
  - URINARY RETENTION [None]
  - WEIGHT DECREASED [None]
